FAERS Safety Report 6884057-4 (Version None)
Quarter: 2010Q3

REPORT INFORMATION
  Report Type: 
  Country: None (occurrence: None)
  Receive Date: 20100729
  Receipt Date: 20100716
  Transmission Date: 20110219
  Serious: Yes (Other)
  Sender: FDA-Public Use
  Company Number: PHHY2010CA37726

PATIENT
  Sex: Female

DRUGS (58)
  1. CLOZARIL [Suspect]
     Indication: SCHIZOPHRENIA
     Dosage: UNK
     Dates: start: 20100422
  2. CLOZARIL [Suspect]
     Indication: SCHIZOAFFECTIVE DISORDER
     Dosage: 100 MG DAILY
     Route: 048
     Dates: start: 20100429
  3. CLOZARIL [Suspect]
     Dosage: 25 MG, 2 TABLETS AT BED TIME
     Dates: start: 20100506
  4. CLOZARIL [Suspect]
     Dosage: 25 MG, 2 TABLETS AT BED TIME
     Dates: start: 20100703
  5. CLOZARIL [Suspect]
     Dosage: 25 MG, 2 TABLETS AT BED TIME
     Dates: start: 20100626
  6. CLOZARIL [Suspect]
     Dosage: 25 MG, 2 TABLETS AT BED TIME
     Dates: start: 20100618
  7. CLOZARIL [Suspect]
     Dosage: 25 MG, 2 TABLETS AT BED TIME
     Dates: start: 20100611
  8. CLOZARIL [Suspect]
     Dosage: 25 MG, 2 TABLETS AT BED TIME
     Dates: start: 20100603
  9. CLOZARIL [Suspect]
     Dosage: 25 MG, 2 TABLETS AT BED TIME
     Dates: start: 20100527
  10. CLOZARIL [Suspect]
     Dosage: 25 MG, 2 TABLETS AT BED TIME
     Dates: start: 20100520
  11. CLOZARIL [Suspect]
     Dosage: 25 MG, 2 TABLETS AT BED TIME
     Dates: start: 20100513
  12. CLOZARIL [Suspect]
     Dosage: 25 MG, 2 TABLETS AT BED TIME
     Dates: start: 20100506
  13. LITHIUM [Concomitant]
  14. SEROQUEL [Concomitant]
     Dosage: UNK
  15. FUROSEMIDE [Concomitant]
     Dosage: 20 MG, 1 TABLET TWICE/DAILY
     Dates: start: 20100714
  16. FUROSEMIDE [Concomitant]
     Dosage: 20 MG, 1 TABLET TWICE/DAILY
     Dates: start: 20100715
  17. FUROSEMIDE [Concomitant]
     Dosage: 20 MG, 1 TABLET ONCE/DAILY
     Dates: start: 20100315
  18. FUROSEMIDE [Concomitant]
     Dosage: 20 MG, 1 TABLET ONCE/DAILY
     Dates: start: 20100619
  19. FUROSEMIDE [Concomitant]
     Dosage: 20 MG, 1 TABLET ONCE/DAILY
     Dates: start: 20100522
  20. FUROSEMIDE [Concomitant]
     Dosage: 20 MG, 1 TABLET ONCE/DAILY
     Dates: start: 20100426
  21. FERROUS SULFATE TAB [Concomitant]
     Dosage: 300 MG,1 TABLET TWICE/DAILY
     Dates: start: 20100626
  22. FERROUS SULFATE TAB [Concomitant]
     Dosage: 300 MG,1 TABLET ONCE/DAILY
     Dates: start: 20100315
  23. FERROUS SULFATE TAB [Concomitant]
     Dosage: 300 MG,1 TABLET TWICE/DAILY
     Dates: start: 20100522
  24. FERROUS SULFATE TAB [Concomitant]
     Dosage: 300 MG,1 TABLET ONCE/DAILY
     Dates: start: 20100315
  25. FERROUS SULFATE TAB [Concomitant]
     Dosage: 300 MG,1 TABLET ONCE/DAILY
     Dates: start: 20100426
  26. FLUTICASONE PROPIONATE [Concomitant]
     Dosage: 50 UG,2 SPRAYS IN EACH NOSTRIL DAILY
     Dates: start: 20100626
  27. FENOFIBRATE [Concomitant]
     Dosage: 200 MG,1 CAPSULE AT SUPPER
     Dates: start: 20100315
  28. FENOFIBRATE [Concomitant]
     Dosage: 200 MG,1 CAPSULE AT SUPPER
     Dates: start: 20100619
  29. FENOFIBRATE [Concomitant]
     Dosage: 200 MG,1 CAPSULE AT SUPPER
     Dates: start: 20100426
  30. PIOGLITAZONE [Concomitant]
     Dosage: 30 MG,1 TABLET ONCE/DAILY
     Dates: start: 20100315
  31. PIOGLITAZONE [Concomitant]
     Dosage: 200 MG, 1TABLET ONCE/DAILY
     Dates: start: 20100619
  32. PIOGLITAZONE [Concomitant]
     Dosage: 200 MG,1 TABLET ONCE/DAILY
     Dates: start: 20100522
  33. RANITIDINE [Concomitant]
     Dosage: 150 MG,HALF TABLET TWICE/DAILY
     Dates: start: 20100315
  34. RANITIDINE [Concomitant]
     Dosage: 150 MG,HALF TABLET TWICE/DAILY
     Dates: start: 20100619
  35. RANITIDINE [Concomitant]
     Dosage: 150 MG,HALF TABLET TWICE/DAILY
     Dates: start: 20100619
  36. ESTRACE [Concomitant]
     Dosage: 1 MG, 1 TABLET IN THE MORNING
     Dates: start: 20100315
  37. ESTRACE [Concomitant]
     Dosage: 1 MG, 1 TABLET IN THE MORNING
     Dates: start: 20100619
  38. ESTRACE [Concomitant]
     Dosage: 1 MG, 1 TABLET IN THE MORNING
     Dates: start: 20100522
  39. ESTRACE [Concomitant]
     Dosage: 1 MG, 1 TABLET IN THE MORNING
     Dates: start: 20100426
  40. LISINOPRIL [Concomitant]
     Dosage: 10 MG, 1 TABLET IN THE MORNING
     Dates: start: 20100315
  41. LISINOPRIL [Concomitant]
     Dosage: 10 MG, 1 TABLET IN THE MORNING
     Dates: start: 20100619
  42. SYNTHROID [Concomitant]
     Dosage: 0.125 MG, 1 TABLET ONCE/DAILY
     Dates: start: 20100315
  43. SYNTHROID [Concomitant]
     Dosage: 0.125 MG, 1 TABLET ONCE/DAILY
     Dates: start: 20100619
  44. SYNTHROID [Concomitant]
     Dosage: 0.125 MG, 1 TABLET ONCE/DAILY
     Dates: start: 20100522
  45. SYNTHROID [Concomitant]
     Dosage: 0.125 MG, 1 TABLET ONCE/DAILY
     Dates: start: 20100426
  46. QUETIAPINE [Concomitant]
     Dosage: 100 MG.1 TABLET AT BED TIME
     Dates: start: 20100315
  47. QUETIAPINE [Concomitant]
     Dosage: 100 MG.1 TABLET AT BED TIME
     Dates: start: 20100619
  48. QUETIAPINE [Concomitant]
     Dosage: 100 MG.1 TABLET AT BED TIME
     Dates: start: 20100522
  49. QUETIAPINE [Concomitant]
     Dosage: 100 MG.1 TABLET AT BED TIME
     Dates: start: 20100506
  50. TEMAZEPAM [Concomitant]
     Dosage: 30 MG,TWO CAPSULES AT BED TIME
     Dates: start: 20100315
  51. TEMAZEPAM [Concomitant]
     Dosage: 30 MG,TWO CAPSULES AT BED TIME
     Dates: start: 20100619
  52. TEMAZEPAM [Concomitant]
     Dosage: 30 MG,TWO CAPSULES AT BED TIME
     Dates: start: 20100522
  53. TEMAZEPAM [Concomitant]
     Dosage: 30 MG,TWO CAPSULES AT BED TIME
     Dates: start: 20100426
  54. TRIAZOLAM [Concomitant]
     Dosage: 0.25 MG,TWO TABLETS AT BED TIME
     Dates: start: 20100315
  55. TRIAZOLAM [Concomitant]
     Dosage: 0.25 MG,TWO TABLETS AT BED TIME
     Dates: start: 20100619
  56. TRIAZOLAM [Concomitant]
     Dosage: 0.25 MG,TWO TABLETS AT BED TIME
     Dates: start: 20100522
  57. TRIAZOLAM [Concomitant]
     Dosage: 0.25 MG,TWO TABLETS AT BED TIME
     Dates: start: 20100425
  58. TRIAZOLAM [Concomitant]
     Dosage: 0.25 MG,TWO TABLETS AT BED TIME
     Dates: start: 20010315

REACTIONS (5)
  - LEUKOPENIA [None]
  - METABOLIC DISORDER [None]
  - NEUTROPHIL COUNT DECREASED [None]
  - RENAL FAILURE [None]
  - SCHIZOPHRENIA [None]
